FAERS Safety Report 20520029 (Version 2)
Quarter: 2022Q1

REPORT INFORMATION
  Report Type: Report from Study
  Country: US (occurrence: US)
  Receive Date: 20220225
  Receipt Date: 20220228
  Transmission Date: 20220423
  Serious: Yes (Hospitalization)
  Sender: FDA-Public Use
  Company Number: US-ABBVIE-22K-163-4285582-00

PATIENT
  Age: 72 Year
  Sex: Female
  Weight: 68.100 kg

DRUGS (2)
  1. HUMIRA [Suspect]
     Active Substance: ADALIMUMAB
     Indication: Psoriatic arthropathy
     Dosage: CITRATE FREE
     Route: 058
     Dates: start: 202107, end: 202201
  2. HUMIRA [Suspect]
     Active Substance: ADALIMUMAB
     Dosage: CITRATE FREE
     Route: 058
     Dates: start: 20220222

REACTIONS (9)
  - Ileus [Recovered/Resolved]
  - Lumbar spinal stenosis [Unknown]
  - Cognitive disorder [Unknown]
  - Body height decreased [Unknown]
  - Weight decreased [Unknown]
  - Dysphagia [Unknown]
  - Retching [Unknown]
  - Pyrexia [Unknown]
  - Sinus headache [Recovering/Resolving]

NARRATIVE: CASE EVENT DATE: 20210819
